FAERS Safety Report 6590058-6 (Version None)
Quarter: 2010Q1

REPORT INFORMATION
  Report Type: 
  Country: None (occurrence: None)
  Receive Date: 20100219
  Receipt Date: 20100214
  Transmission Date: 20100710
  Serious: Yes (Other)
  Sender: FDA-Public Use
  Company Number: B0614643A

PATIENT
  Sex: Female

DRUGS (1)
  1. ALLI [Suspect]
     Dosage: 1CAP THREE TIMES PER DAY
     Route: 065
     Dates: start: 20091012, end: 20091208

REACTIONS (1)
  - UPPER LIMB FRACTURE [None]
